FAERS Safety Report 6741300-X (Version None)
Quarter: 2010Q2

REPORT INFORMATION
  Report Type: 
  Country: None (occurrence: None)
  Receive Date: 20100526
  Receipt Date: 20070319
  Transmission Date: 20101027
  Serious: Yes (Life-Threatening)
  Sender: FDA-Public Use
  Company Number: TR-SANOFI-AVENTIS-200712471GDDC

PATIENT
  Age: 7 Year
  Sex: Male

DRUGS (3)
  1. CEFOTAXIME SODIUM [Suspect]
     Dosage: DOSE AS USED: UNK
  2. VANCOMYCIN [Suspect]
     Dosage: DOSE AS USED: UNK
  3. CONCOMITANT MEDICATIONS NOT PROVIDED [Concomitant]

REACTIONS (1)
  - DRUG RASH WITH EOSINOPHILIA AND SYSTEMIC SYMPTOMS [None]
